FAERS Safety Report 7401874-2 (Version None)
Quarter: 2011Q2

REPORT INFORMATION
  Report Type: 
  Country: None (occurrence: None)
  Receive Date: 20110408
  Receipt Date: 20110324
  Transmission Date: 20111010
  Serious: Yes (Hospitalization)
  Sender: FDA-Public Use
  Company Number: CA-JNJFOC-20110311413

PATIENT
  Sex: Female
  Weight: 128.2 kg

DRUGS (10)
  1. LEVEMIR [Concomitant]
     Route: 058
  2. CELEBREX [Concomitant]
     Route: 048
  3. SYNTHROID [Concomitant]
     Route: 048
  4. NORVASC [Concomitant]
     Route: 048
  5. REMICADE [Suspect]
     Indication: CROHN'S DISEASE
     Route: 042
  6. NOVOLOG [Concomitant]
     Route: 058
  7. SUPEUDOL [Concomitant]
     Dosage: AS NEEDED
     Route: 048
  8. PANTOLOC [Concomitant]
     Route: 048
  9. HYDROCHLOROTHIAZIDE [Concomitant]
     Route: 048
  10. CRESTOR [Concomitant]
     Route: 048

REACTIONS (1)
  - PERICARDITIS [None]
